FAERS Safety Report 5618222-0 (Version None)
Quarter: 2008Q1

REPORT INFORMATION
  Report Type: 
  Country: None (occurrence: None)
  Receive Date: 20080207
  Receipt Date: 20080128
  Transmission Date: 20080703
  Serious: Yes (Hospitalization)
  Sender: FDA-Public Use
  Company Number: BR-JNJFOC-20080107146

PATIENT
  Age: 53 Year
  Sex: Female
  Weight: 65 kg

DRUGS (3)
  1. HALDOL [Suspect]
  2. HALDOL [Suspect]
     Indication: COGNITIVE DISORDER
  3. PAIN MEDICATIONS (NOS) [Concomitant]

REACTIONS (5)
  - BACK INJURY [None]
  - MUSCLE RIGIDITY [None]
  - OEDEMA PERIPHERAL [None]
  - PAIN IN EXTREMITY [None]
  - WHEEZING [None]
